FAERS Safety Report 15777022 (Version 3)
Quarter: 2019Q1

REPORT INFORMATION
  Report Type: Spontaneous
  Country: MA (occurrence: MA)
  Receive Date: 20181231
  Receipt Date: 20190130
  Transmission Date: 20190417
  Serious: Yes (Life-Threatening, Hospitalization, Other)
  Sender: FDA-Public Use
  Company Number: IND-MA-009507513-1812MAR011001

PATIENT

DRUGS (2)
  1. HEPATITIS B VIRUS VACCINE (UNSPECIFIED) [Suspect]
     Active Substance: HEPATITIS B VIRUS VACCINE
  2. ESMERON [Suspect]
     Active Substance: ROCURONIUM BROMIDE
     Dosage: UNK, ONCE
     Dates: start: 20181217

REACTIONS (3)
  - Respiratory distress [Recovering/Resolving]
  - Wrong product administered [Unknown]
  - Product appearance confusion [Unknown]

NARRATIVE: CASE EVENT DATE: 20181217
